FAERS Safety Report 4357630-5 (Version None)
Quarter: 2004Q2

REPORT INFORMATION
  Report Type: 
  Country: None (occurrence: None)
  Receive Date: 20040510
  Receipt Date: 20040426
  Transmission Date: 20050107
  Serious: Yes (Hospitalization)
  Sender: FDA-Public Use
  Company Number: HQWYE621228APR04

PATIENT
  Age: 76 Year
  Sex: Female
  Weight: 65.83 kg

DRUGS (2)
  1. PREMPRO [Suspect]
     Dosage: 0.625MG/5MG, ORAL
     Route: 048
     Dates: start: 20020101, end: 20030101
  2. PREMARIN [Suspect]
     Indication: HORMONE REPLACEMENT THERAPY
     Dosage: 1/3 APPLICATOR TWICE WEEKLY, VAGINAL
     Route: 067
     Dates: start: 20020101, end: 20030101

REACTIONS (12)
  - ABDOMINAL PAIN [None]
  - ASTHENIA [None]
  - ATRIAL FIBRILLATION [None]
  - CYSTITIS [None]
  - DIZZINESS [None]
  - FEELING HOT [None]
  - HYPERHIDROSIS [None]
  - HYPERTENSION [None]
  - LIP AND/OR ORAL CAVITY CANCER [None]
  - LOSS OF CONSCIOUSNESS [None]
  - PARAESTHESIA [None]
  - WEIGHT DECREASED [None]
